FAERS Safety Report 5448190-6 (Version None)
Quarter: 2007Q3

REPORT INFORMATION
  Report Type: 
  Country: None (occurrence: None)
  Receive Date: 20070907
  Receipt Date: 20070907
  Transmission Date: 20080115
  Serious: Yes (Hospitalization, Other)
  Sender: FDA-Public Use
  Company Number: None

PATIENT
  Age: 74 Year
  Sex: Female
  Weight: 73.88 kg

DRUGS (4)
  1. NEULASTA [Suspect]
     Indication: CHRONIC MYELOID LEUKAEMIA
     Dates: start: 20070803, end: 20070803
  2. LEVOTHYROXINE SODIUM [Concomitant]
  3. NEXIUM [Concomitant]
  4. ALLOPURINOL [Concomitant]

REACTIONS (3)
  - MUSCLE SPASMS [None]
  - PAIN [None]
  - SPLENIC HAEMORRHAGE [None]
